FAERS Safety Report 9030209 (Version 5)
Quarter: 2013Q2

REPORT INFORMATION
  Report Type: Spontaneous
  Country: AR (occurrence: AR)
  Receive Date: 20130125
  Receipt Date: 20130425
  Transmission Date: 20140414
  Serious: Yes (Other)
  Sender: FDA-Public Use
  Company Number: AR-AMGEN-ARGSP2013005194

PATIENT
  Age: 69 Year
  Sex: Female

DRUGS (2)
  1. ENBREL [Suspect]
     Indication: RHEUMATOID ARTHRITIS
     Dosage: 50 MG, WEEKLY
     Dates: start: 20111018, end: 201301
  2. OMEPRAZOL                          /00661201/ [Concomitant]
     Dosage: UNK

REACTIONS (2)
  - Cardiac murmur [Recovered/Resolved]
  - Feeling abnormal [Recovered/Resolved]
